FAERS Safety Report 7482507-6 (Version None)
Quarter: 2011Q2

REPORT INFORMATION
  Report Type: 
  Country: None (occurrence: None)
  Receive Date: 20110516
  Receipt Date: 20101015
  Transmission Date: 20111010
  Serious: Yes (Hospitalization, Other)
  Sender: FDA-Public Use
  Company Number: US-BAYER-201013982NA

PATIENT
  Age: 45 Year
  Sex: Female
  Weight: 64 kg

DRUGS (9)
  1. PERCOCET [Concomitant]
     Indication: PAIN
     Dates: start: 20060101
  2. NSAID'S [Concomitant]
  3. NSAID'S [Concomitant]
  4. ASCORBIC ACID [Concomitant]
  5. ANTIBIOTICS [Concomitant]
  6. WELLBUTRIN [Concomitant]
     Indication: ANXIETY
  7. YASMIN [Suspect]
     Indication: CONTRACEPTION
     Route: 048
     Dates: start: 20021101, end: 20061201
  8. STEROIDS [Concomitant]
     Dates: start: 20060101
  9. OXYCET [Concomitant]
     Dates: start: 20060101

REACTIONS (6)
  - CHOLECYSTITIS CHRONIC [None]
  - CHOLECYSTECTOMY [None]
  - THROMBOSIS [None]
  - PULMONARY EMBOLISM [None]
  - INJURY [None]
  - CHOLELITHIASIS [None]
